FAERS Safety Report 23081602 (Version 1)
Quarter: 2023Q4

REPORT INFORMATION
  Report Type: Spontaneous
  Country: US (occurrence: US)
  Receive Date: 20231019
  Receipt Date: 20231019
  Transmission Date: 20240109
  Serious: No
  Sender: FDA-Public Use
  Company Number: US-tianyaoyaoye-2023-tjpc-000005

PATIENT
  Age: 77 Year
  Sex: Female
  Weight: 88.45 kg

DRUGS (1)
  1. METHYLPREDNISOLONE [Suspect]
     Active Substance: METHYLPREDNISOLONE
     Indication: Swelling face
     Dosage: FIRST DAY: 02 TABLETS BEFORE BREAKFAST, 01 TABLET AFTER LUNCH AND 01 TABLET AFTER SUPPER AND 02 T...
     Dates: start: 20230707, end: 20230712

REACTIONS (3)
  - Diarrhoea [Not Recovered/Not Resolved]
  - Swelling [Not Recovered/Not Resolved]
  - Cough [Not Recovered/Not Resolved]

NARRATIVE: CASE EVENT DATE: 20230707
